FAERS Safety Report 6532261-7 (Version None)
Quarter: 2010Q1

REPORT INFORMATION
  Report Type: 
  Country: None (occurrence: None)
  Receive Date: 20100108
  Receipt Date: 20100105
  Transmission Date: 20100710
  Serious: Yes (Death, Hospitalization, Other)
  Sender: FDA-Public Use
  Company Number: PHEH2008US04764

PATIENT
  Sex: Male

DRUGS (8)
  1. ZOMETA [Suspect]
     Dosage: MONTHLY
  2. LIPITOR [Concomitant]
  3. ZOLOFT [Concomitant]
  4. COUMADIN [Concomitant]
  5. AMIODARONE HCL [Concomitant]
     Indication: ATRIAL FIBRILLATION
     Dosage: 400 MG, TID
     Route: 048
  6. DIGOXIN [Concomitant]
     Dosage: 0.25 MG, UNK
  7. CARDIZEM [Concomitant]
  8. ACCUPRIL [Concomitant]

REACTIONS (31)
  - ABSCESS [None]
  - ANHEDONIA [None]
  - ANXIETY [None]
  - ASTHENIA [None]
  - ATRIAL FIBRILLATION [None]
  - BACK PAIN [None]
  - CARPAL TUNNEL SYNDROME [None]
  - DEPRESSED MOOD [None]
  - DEPRESSION [None]
  - HEADACHE [None]
  - HYPERLIPIDAEMIA [None]
  - HYPOAESTHESIA [None]
  - INJURY [None]
  - INSOMNIA [None]
  - LOCAL SWELLING [None]
  - LUNG NEOPLASM MALIGNANT [None]
  - MEDIASTINAL MASS [None]
  - MUSCULOSKELETAL DISCOMFORT [None]
  - MUSCULOSKELETAL PAIN [None]
  - OSTEOARTHRITIS [None]
  - OSTEONECROSIS [None]
  - PAIN [None]
  - PAIN IN JAW [None]
  - RESPIRATORY TRACT NEOPLASM [None]
  - ROTATOR CUFF SYNDROME [None]
  - SUPERIOR VENA CAVAL OCCLUSION [None]
  - SWELLING [None]
  - SWELLING FACE [None]
  - TOOTH EXTRACTION [None]
  - TOOTHACHE [None]
  - URINARY RETENTION [None]
